FAERS Safety Report 6537198-5 (Version None)
Quarter: 2010Q1

REPORT INFORMATION
  Report Type: 
  Country: None (occurrence: None)
  Receive Date: 20100114
  Receipt Date: 20100104
  Transmission Date: 20100710
  Serious: Yes (Hospitalization)
  Sender: FDA-Public Use
  Company Number: US-JNJFOC-20100100277

PATIENT
  Age: 73 Year
  Sex: Male
  Weight: 92.53 kg

DRUGS (5)
  1. TYLENOL (CAPLET) [Suspect]
     Route: 048
  2. TYLENOL (CAPLET) [Suspect]
     Indication: ARTHRALGIA
     Route: 048
  3. BENICAR [Concomitant]
     Indication: HYPERTENSION
  4. PRILOSEC [Concomitant]
     Indication: GASTROOESOPHAGEAL REFLUX DISEASE
     Route: 048
  5. CINNAMON CAPSULES [Concomitant]
     Indication: NUTRITIONAL SUPPORT

REACTIONS (2)
  - OESOPHAGEAL ULCER HAEMORRHAGE [None]
  - PRODUCT QUALITY ISSUE [None]
